FAERS Safety Report 4648471-X (Version None)
Quarter: 2005Q2

REPORT INFORMATION
  Report Type: 
  Country: None (occurrence: None)
  Receive Date: 20050429
  Receipt Date: 20050420
  Transmission Date: 20051028
  Serious: Yes (Other)
  Sender: FDA-Public Use
  Company Number: PHBS2005KR05723

PATIENT
  Age: 37 Year
  Sex: Female

DRUGS (1)
  1. LAMISIL [Suspect]
     Indication: CHROMOBLASTOMYCOSIS

REACTIONS (2)
  - CONDITION AGGRAVATED [None]
  - SKIN LESION [None]
